FAERS Safety Report 23937664 (Version 6)
Quarter: 2024Q3

REPORT INFORMATION
  Report Type: Spontaneous
  Country: US (occurrence: US)
  Receive Date: 20240604
  Receipt Date: 20240920
  Transmission Date: 20241016
  Serious: Yes (Other)
  Sender: BLUEPRINT MEDICINES
  Company Number: US-Blueprint Medicines Corporation-3760

PATIENT
  Age: 55 Year
  Sex: Female

DRUGS (4)
  1. AYVAKIT [Suspect]
     Active Substance: AVAPRITINIB
     Indication: Systemic mastocytosis
     Route: 065
     Dates: start: 20240507
  2. AYVAKIT [Suspect]
     Active Substance: AVAPRITINIB
     Route: 065
     Dates: start: 20240217
  3. AYVAKIT [Suspect]
     Active Substance: AVAPRITINIB
     Route: 065
     Dates: start: 20220217
  4. VIAGRA [Concomitant]
     Active Substance: SILDENAFIL CITRATE
     Indication: Cardiac disorder
     Route: 065

REACTIONS (17)
  - Loss of consciousness [Unknown]
  - Pulmonary hypertension [Unknown]
  - Coronary artery disease [Unknown]
  - Thyroid mass [Unknown]
  - Muscular weakness [Unknown]
  - Dehydration [Unknown]
  - Dyspnoea [Unknown]
  - Eye swelling [Unknown]
  - Hair texture abnormal [Unknown]
  - Alopecia [Unknown]
  - Gait disturbance [Unknown]
  - Memory impairment [Unknown]
  - Abdominal discomfort [Recovered/Resolved]
  - Hypertension [Unknown]
  - Cortisol increased [Unknown]
  - Cortisol decreased [Unknown]
  - Product dose omission in error [Unknown]

NARRATIVE: CASE EVENT DATE: 20240714
